FAERS Safety Report 19468013 (Version 1)
Quarter: 2021Q2

REPORT INFORMATION
  Report Type: Spontaneous
  Country: DE (occurrence: DE)
  Receive Date: 20210628
  Receipt Date: 20210628
  Transmission Date: 20210717
  Serious: Yes (Hospitalization)
  Sender: FDA-Public Use
  Company Number: DE-TEVA-2021-DE-1925852

PATIENT
  Age: 13 Year
  Sex: Female
  Weight: 82 kg

DRUGS (4)
  1. BELIMUMAB [Concomitant]
     Active Substance: BELIMUMAB
     Indication: SYSTEMIC LUPUS ERYTHEMATOSUS
     Dosage: 700MG
     Route: 042
     Dates: start: 20200108
  2. PREDNISOLON [Suspect]
     Active Substance: PREDNISOLONE
     Indication: LUPUS NEPHRITIS
     Route: 048
     Dates: start: 20200310, end: 20200831
  3. CELLCEPT [Concomitant]
     Active Substance: MYCOPHENOLATE MOFETIL\MYCOPHENOLATE MOFETIL HYDROCHLORIDE
     Indication: LUPUS NEPHRITIS
     Dosage: DAILY DOSE: 2000 MG MILLGRAM(S) EVERY DAYS 2 SEPARATED DOSES
  4. METHYLPREDNISOLONE. [Suspect]
     Active Substance: METHYLPREDNISOLONE
     Indication: LUPUS NEPHRITIS
     Dosage: 700 MG, 350 MG, 180 MG
     Route: 042
     Dates: start: 20200306, end: 20200309

REACTIONS (2)
  - Arthralgia [Not Recovered/Not Resolved]
  - Osteonecrosis [Not Recovered/Not Resolved]

NARRATIVE: CASE EVENT DATE: 20201109
